FAERS Safety Report 7833491-4 (Version None)
Quarter: 2011Q4

REPORT INFORMATION
  Report Type: 
  Country: None (occurrence: None)
  Receive Date: 20111020
  Receipt Date: 20111006
  Transmission Date: 20120403
  Serious: Yes (Other)
  Sender: FDA-Public Use
  Company Number: TPA2011A06515

PATIENT
  Age: 81 Year
  Sex: Male

DRUGS (11)
  1. FLEXERIL [Concomitant]
  2. LIPITOR [Concomitant]
  3. LISINIPRIL (LISINOPRIL) [Concomitant]
  4. DIOVAN [Concomitant]
  5. ACTOS [Suspect]
     Indication: TYPE 2 DIABETES MELLITUS
     Dosage: 30 MG, 1 IN 1 D, PER ORAL
     Route: 048
     Dates: end: 20110929
  6. COUMADIN [Concomitant]
  7. GLIPIZIDE [Concomitant]
  8. HYDROCODONE/APAP (PARACETAMOL, HYDROCODONE) [Concomitant]
  9. BACTROBAN [Concomitant]
  10. METFORMIN HCL [Concomitant]
  11. HYDROCORTISONE VALER. (HYDROCORTISONE VALERATE) [Concomitant]

REACTIONS (2)
  - HAEMATURIA [None]
  - BLADDER MASS [None]
